FAERS Safety Report 6805513-0 (Version None)
Quarter: 2010Q2

REPORT INFORMATION
  Report Type: 
  Country: None (occurrence: None)
  Receive Date: 20100628
  Receipt Date: 20071220
  Transmission Date: 20101027
  Serious: No
  Sender: FDA-Public Use
  Company Number: US-PFIZER INC-2007106929

PATIENT
  Sex: Female

DRUGS (1)
  1. XALATAN [Suspect]
     Indication: GLAUCOMA
     Dates: start: 20071218, end: 20071219

REACTIONS (2)
  - OCULAR HYPERAEMIA [None]
  - PUPILLARY DISORDER [None]
